FAERS Safety Report 6382126-9 (Version None)
Quarter: 2009Q3

REPORT INFORMATION
  Report Type: 
  Country: None (occurrence: None)
  Receive Date: 20090930
  Receipt Date: 20090924
  Transmission Date: 20100115
  Serious: Yes (Other)
  Sender: FDA-Public Use
  Company Number: PHEH2006US04720

PATIENT
  Sex: Male

DRUGS (5)
  1. AREDIA [Suspect]
  2. ZOMETA [Suspect]
  3. WARFARIN SODIUM [Concomitant]
     Dosage: 1 MG, QD
  4. CLARITIN-D [Concomitant]
  5. ALEVE [Concomitant]
     Dosage: 220 MG, QD

REACTIONS (5)
  - EMOTIONAL DISTRESS [None]
  - INJURY [None]
  - OSTEONECROSIS [None]
  - PAIN [None]
  - SCROTAL CYST [None]
